FAERS Safety Report 8486320-2 (Version None)
Quarter: 2012Q3

REPORT INFORMATION
  Report Type: 
  Country: None (occurrence: None)
  Receive Date: 20120703
  Receipt Date: 20120622
  Transmission Date: 20120928
  Serious: Yes (Hospitalization)
  Sender: FDA-Public Use
  Company Number: US-GLAXOSMITHKLINE-A0903529A

PATIENT
  Age: 72 Year
  Sex: Male
  Weight: 83.2 kg

DRUGS (9)
  1. NASONEX [Concomitant]
  2. LIPITOR [Concomitant]
  3. AVANDIA [Suspect]
     Indication: DIABETES MELLITUS
     Dosage: 4MG TWICE PER DAY
     Route: 048
     Dates: start: 20070129, end: 20100405
  4. NIASPAN [Concomitant]
  5. ZETIA [Concomitant]
  6. JANUVIA [Concomitant]
  7. ALLOPURINOL [Concomitant]
  8. PATANOL [Concomitant]
  9. VALPROIC ACID [Concomitant]

REACTIONS (7)
  - CARDIAC FAILURE CONGESTIVE [None]
  - ATRIAL FIBRILLATION [None]
  - GAIT DISTURBANCE [None]
  - TREMOR [None]
  - CORONARY ARTERY DISEASE [None]
  - ASTHENIA [None]
  - INJURY [None]
